FAERS Safety Report 14280860 (Version 8)
Quarter: 2018Q2

REPORT INFORMATION
  Report Type: Report from Study
  Country: DE (occurrence: DE)
  Receive Date: 20171213
  Receipt Date: 20180622
  Transmission Date: 20180711
  Serious: Yes (Hospitalization)
  Sender: FDA-Public Use
  Company Number: DE-GLAXOSMITHKLINE-DE2017GSK188417

PATIENT
  Age: 37 Year
  Sex: Female
  Weight: 95 kg

DRUGS (4)
  1. ZOVIRAX [Suspect]
     Active Substance: ACYCLOVIR
     Indication: HERPES VIRUS INFECTION
     Dosage: UNK DRUG NOT ADMINISTERED,ROUTE:TOPICAL
     Route: 061
  2. CEFUROXIME. [Suspect]
     Active Substance: CEFUROXIME
     Indication: LYMPHADENOPATHY
     Dosage: 1000 MG, 1D
     Route: 050
     Dates: start: 20170921, end: 20171001
  3. IBUPROFEN. [Concomitant]
     Active Substance: IBUPROFEN
     Indication: HEADACHE
     Dosage: UNK (800MG)
     Route: 065
  4. ZINBRYTA [Suspect]
     Active Substance: DACLIZUMAB
     Indication: RELAPSING-REMITTING MULTIPLE SCLEROSIS
     Dosage: 150 MG, UNK
     Route: 058
     Dates: start: 20170209

REACTIONS (2)
  - Herpes virus infection [Recovered/Resolved]
  - Lymphadenopathy [Recovered/Resolved]

NARRATIVE: CASE EVENT DATE: 20170921
